FAERS Safety Report 14604574 (Version 3)
Quarter: 2018Q1

REPORT INFORMATION
  Report Type: Spontaneous
  Country: JP (occurrence: JP)
  Receive Date: 20180306
  Receipt Date: 20180322
  Transmission Date: 20180509
  Serious: Yes (Hospitalization, Other)
  Sender: FDA-Public Use
  Company Number: JP-009507513-1706JPN000372J

PATIENT
  Age: 74 Year
  Sex: Female
  Weight: 45 kg

DRUGS (2)
  1. KEYTRUDA [Suspect]
     Active Substance: PEMBROLIZUMAB
     Dosage: 200 MG, Q3W
     Route: 041
     Dates: start: 20170630, end: 20180202
  2. KEYTRUDA [Suspect]
     Active Substance: PEMBROLIZUMAB
     Indication: LUNG ADENOCARCINOMA
     Dosage: 200 MG, Q3W
     Route: 041
     Dates: start: 20170414, end: 20170609

REACTIONS (4)
  - Cholecystitis [Not Recovered/Not Resolved]
  - Cholangitis acute [Recovering/Resolving]
  - Blood creatinine increased [Recovered/Resolved]
  - Bile duct cancer [Unknown]

NARRATIVE: CASE EVENT DATE: 20170602
